FAERS Safety Report 9306804 (Version 1)
Quarter: 2013Q2

REPORT INFORMATION
  Report Type: Spontaneous
  Country: GB (occurrence: GB)
  Receive Date: 20130523
  Receipt Date: 20130523
  Transmission Date: 20140414
  Serious: Yes (Other)
  Sender: FDA-Public Use
  Company Number: GB-ABBOTT-13P-167-1094242-00

PATIENT
  Age: 41 Year
  Sex: 0

DRUGS (4)
  1. HUMIRA [Suspect]
     Indication: CROHN^S DISEASE
  2. FLUOXETINE [Concomitant]
     Indication: DEPRESSION
     Dosage: PHARMACEUTICAL FORM 5
     Dates: start: 200912
  3. LEVOTHYROXINE SODIUM [Concomitant]
     Indication: HYPOTHYROIDISM
     Dosage: PHARMACEUTICAL FORM 245
     Dates: start: 200912
  4. CO-CODAMOL [Concomitant]
     Indication: PRODUCT USED FOR UNKNOWN INDICATION
     Dosage: 30MG/500MG UP TO 8 PER DAY WHEN REQUIRED
     Dates: start: 200912

REACTIONS (1)
  - Tooth loss [Unknown]
